FAERS Safety Report 4733012-9 (Version None)
Quarter: 2005Q3

REPORT INFORMATION
  Report Type: 
  Country: None (occurrence: None)
  Receive Date: 20050725
  Receipt Date: 20040720
  Transmission Date: 20060218
  Serious: Yes (Death)
  Sender: FDA-Public Use
  Company Number: USA-2004-0016101

PATIENT
  Age: 20 Year
  Sex: Male
  Weight: 79.8 kg

DRUGS (6)
  1. MORPHINE SULFATE [Suspect]
  2. METHYLENEDIOXYMETHAMPHETAMINE (METHYLENEDIOXYMETHAMPHETAMINE) [Suspect]
  3. ALPRAZOLAM [Suspect]
  4. NICOTINE [Suspect]
  5. CAFFEINE (CAFFEINE) [Suspect]
  6. LIDOCAINE HCL INJ [Suspect]

REACTIONS (2)
  - ACCIDENTAL OVERDOSE [None]
  - COMA [None]
